FAERS Safety Report 26131717 (Version 2)
Quarter: 2025Q4

REPORT INFORMATION
  Report Type: Spontaneous
  Country: EU (occurrence: EU)
  Receive Date: 20251208
  Receipt Date: 20251210
  Transmission Date: 20260117
  Serious: Yes (Hospitalization)
  Sender: MERCK SHARP & DOHME LLC
  Company Number: None

PATIENT
  Age: 62 Year
  Sex: Female

DRUGS (4)
  1. KEYTRUDA [Suspect]
     Active Substance: PEMBROLIZUMAB
     Indication: Malignant melanoma
     Route: 042
     Dates: start: 20250107, end: 20250107
  2. CORTANCYL 1 mg, tablet [Concomitant]
  3. ARTISIAL, solution for endo-oral spraying [Concomitant]
  4. PLAQUENIL [Concomitant]
     Active Substance: HYDROXYCHLOROQUINE SULFATE

REACTIONS (4)
  - Arthralgia [Not Recovered/Not Resolved]
  - Hepatitis [Recovered/Resolved]
  - Paraesthesia [Recovered/Resolved]
  - Sicca syndrome [Recovering/Resolving]

NARRATIVE: CASE EVENT DATE: 20250116
